FAERS Safety Report 22522395 (Version 1)
Quarter: 2023Q2

REPORT INFORMATION
  Report Type: Spontaneous
  Country: KR (occurrence: KR)
  Receive Date: 20230605
  Receipt Date: 20230605
  Transmission Date: 20230721
  Serious: Yes (Hospitalization)
  Sender: FDA-Public Use
  Company Number: KR-ORGANON-O2305KOR003052

PATIENT
  Age: 65 Year
  Sex: Female
  Weight: 75 kg

DRUGS (7)
  1. COZAAR [Suspect]
     Active Substance: LOSARTAN POTASSIUM
     Indication: Essential hypertension
     Dosage: 1 FORMULATION 1 DAY
     Route: 048
     Dates: start: 2018
  2. CLOPIDOGREL BISULFATE [Suspect]
     Active Substance: CLOPIDOGREL BISULFATE
     Indication: Angina unstable
     Dosage: 75 MILLIGRAM, 1 DAY
     Route: 048
     Dates: start: 20181016
  3. ASPIRIN [Suspect]
     Active Substance: ASPIRIN
     Indication: Angina unstable
     Dosage: 100 MILLIGRAM, QD
     Route: 048
     Dates: start: 20181016
  4. PITAVASTATIN CALCIUM [Concomitant]
     Active Substance: PITAVASTATIN CALCIUM
     Indication: Arteriosclerosis coronary artery
     Dosage: 4 MILLIGRAM, 1 DAY
     Route: 048
     Dates: start: 20181017
  5. TRIMETAZIDINE DIHYDROCHLORIDE [Concomitant]
     Active Substance: TRIMETAZIDINE DIHYDROCHLORIDE
     Indication: Arteriosclerosis coronary artery
     Dosage: 2 FORMULATION, 0.5 DAY
     Route: 048
     Dates: start: 20181017
  6. NICORANDIL [Concomitant]
     Active Substance: NICORANDIL
     Indication: Arteriosclerosis coronary artery
     Dosage: 2.5 MILLIGRAM, ONE DAY
     Route: 048
     Dates: start: 20181017
  7. AMLODIPINE BESYLATE [Concomitant]
     Active Substance: AMLODIPINE BESYLATE
     Indication: Essential hypertension
     Dosage: 1 FORMULATION 1 DAY
     Route: 048
     Dates: start: 2018

REACTIONS (1)
  - Gastrointestinal haemorrhage [Recovered/Resolved]

NARRATIVE: CASE EVENT DATE: 20190326
